FAERS Safety Report 7743602-7 (Version None)
Quarter: 2011Q3

REPORT INFORMATION
  Report Type: 
  Country: None (occurrence: None)
  Receive Date: 20110912
  Receipt Date: 20110831
  Transmission Date: 20111222
  Serious: Yes (Hospitalization)
  Sender: FDA-Public Use
  Company Number: DE-UCBSA-030686

PATIENT
  Sex: Male
  Weight: 98.5 kg

DRUGS (18)
  1. OLMESARTAN MEDOXOMIL [Concomitant]
     Dates: start: 20110215
  2. NOVAMINSULFON [Concomitant]
     Indication: PAIN
     Dates: start: 20110501
  3. ASPIRIN [Concomitant]
     Indication: CORONARY ARTERY DISEASE
     Dates: start: 20110501
  4. CLOPIDOGREL [Concomitant]
     Indication: ANTICOAGULANT THERAPY
     Dates: start: 20110501
  5. ISOSORBIDE DINITRATE [Concomitant]
     Indication: CORONARY ARTERY DISEASE
     Dates: start: 20050101
  6. BISOPOROL [Concomitant]
     Indication: HYPERTENSION
     Dates: start: 20050101, end: 20110501
  7. ALLO [Concomitant]
     Indication: HYPERTENSION
     Dates: start: 20050101
  8. OLMESARTAN MEDOXOMIL [Concomitant]
     Indication: HYPERTENSION
     Dates: start: 20050101, end: 20110215
  9. TORSEMIDE [Concomitant]
     Indication: HYPERTENSION
     Dates: start: 20050101
  10. GLIMEPIRID [Concomitant]
     Indication: TYPE 2 DIABETES MELLITUS
     Dates: start: 20050101
  11. LAMOTRIGINE [Concomitant]
     Indication: EPILEPSY
     Route: 048
     Dates: start: 20080101
  12. PARAVASTATIN [Concomitant]
     Indication: HYPERURICAEMIA
     Dosage: 1 TABLET DAILY
     Dates: start: 20040101
  13. RANEXA [Concomitant]
     Indication: ANGINA PECTORIS
     Dosage: 2X2
     Dates: start: 20110501
  14. PANTOPRAZOLE [Concomitant]
     Indication: ANTACID THERAPY
     Dates: start: 20110501
  15. VOLTAREN [Concomitant]
     Indication: PAIN
     Dates: start: 20110501
  16. VIMPAT [Suspect]
     Indication: EPILEPSY
     Route: 048
     Dates: start: 20110114
  17. DIOVAN [Concomitant]
     Indication: HYPERTENSION
     Dates: start: 20110501
  18. SIMVASTATIN [Concomitant]
     Indication: BLOOD CHOLESTEROL INCREASED

REACTIONS (4)
  - BRAIN STEM ISCHAEMIA [None]
  - SYNCOPE [None]
  - ANGINA PECTORIS [None]
  - DIZZINESS [None]
